FAERS Safety Report 7710991-9 (Version None)
Quarter: 2011Q3

REPORT INFORMATION
  Report Type: 
  Country: None (occurrence: None)
  Receive Date: 20110825
  Receipt Date: 20110816
  Transmission Date: 20111222
  Serious: Yes (Hospitalization)
  Sender: FDA-Public Use
  Company Number: US-ASTRAZENECA-2011SE48872

PATIENT
  Age: 45 Year
  Sex: Male
  Weight: 63.5 kg

DRUGS (4)
  1. NEXIUM [Suspect]
     Indication: ULCER
     Route: 048
     Dates: start: 20090101
  2. ZOLOFT [Concomitant]
     Indication: DEPRESSION
     Route: 048
     Dates: start: 20090101
  3. SEROQUEL XR [Suspect]
     Indication: PSYCHOTIC DISORDER
     Route: 048
     Dates: start: 20090101
  4. NEXIUM [Suspect]
     Indication: DYSPEPSIA
     Route: 048
     Dates: start: 20090101

REACTIONS (2)
  - INTERVERTEBRAL DISC DISPLACEMENT [None]
  - ACCIDENT AT WORK [None]
